FAERS Safety Report 9728368 (Version 1)
Quarter: 2013Q4

REPORT INFORMATION
  Report Type: Spontaneous
  Country: US (occurrence: US)
  Receive Date: 20131204
  Receipt Date: 20131204
  Transmission Date: 20140711
  Serious: No
  Sender: FDA-Public Use
  Company Number: US-009507513-1311USA009649

PATIENT
  Sex: Male

DRUGS (1)
  1. TINACTIN SPRAY POWDER [Suspect]
     Indication: TINEA CRURIS
     Dosage: UNK, UNKNOWN
     Route: 061
     Dates: start: 20131112

REACTIONS (1)
  - Skin burning sensation [Unknown]
